FAERS Safety Report 7490783-9 (Version None)
Quarter: 2011Q2

REPORT INFORMATION
  Report Type: 
  Country: None (occurrence: None)
  Receive Date: 20110519
  Receipt Date: 20110506
  Transmission Date: 20111010
  Serious: Yes (Hospitalization, Other)
  Sender: FDA-Public Use
  Company Number: US-BAYER-2010-002794

PATIENT
  Age: 41 Year
  Sex: Female
  Weight: 68.481 kg

DRUGS (3)
  1. MOTRIN [Concomitant]
     Route: 048
  2. SYNTHROID [Concomitant]
  3. YASMIN [Suspect]
     Indication: ENDOMETRIOSIS
     Dosage: UNK UNK, QD
     Route: 048
     Dates: start: 20040901, end: 20041001

REACTIONS (3)
  - PAIN [None]
  - DEEP VEIN THROMBOSIS [None]
  - THROMBOSIS [None]
